FAERS Safety Report 10582306 (Version 1)
Quarter: 2014Q4

REPORT INFORMATION
  Report Type: Spontaneous
  Country: AU (occurrence: AU)
  Receive Date: 20141113
  Receipt Date: 20141113
  Transmission Date: 20150529
  Serious: Yes (Hospitalization)
  Sender: FDA-Public Use
  Company Number: AU-ABBVIE-14P-008-1305262-00

PATIENT
  Age: 90 Year
  Sex: Male

DRUGS (1)
  1. LUCRIN DEPOT [Suspect]
     Active Substance: LEUPROLIDE ACETATE
     Indication: PROSTATE CANCER
     Dosage: 3-MONTHS DEPOT STRENGTH, INTERMITTENT THERAPY
     Route: 065
     Dates: start: 201205

REACTIONS (2)
  - Cardiac disorder [Unknown]
  - Pancreatic disorder [Unknown]
